FAERS Safety Report 7934900 (Version 3)
Quarter: 2014Q1

REPORT INFORMATION
  Report Type: Spontaneous
  Country: US (occurrence: US)
  Receive Date: 20110509
  Receipt Date: 20140210
  Transmission Date: 20141002
  Serious: Yes (Hospitalization)
  Sender: FDA-Public Use
  Company Number: US-BAYER-2011-038694

PATIENT
  Age: 21 Year
  Sex: Female
  Weight: 81.63 kg

DRUGS (6)
  1. YASMIN [Suspect]
     Indication: CONTRACEPTION
     Dosage: UNK
     Dates: start: 200410, end: 200904
  2. TRAZODONE [Concomitant]
     Dosage: 75 MG, AT BEDTIME
  3. PAROXETINE [Concomitant]
     Dosage: 40 MG, DAILY
  4. HYDROCODONE [Concomitant]
     Dosage: UNK UNK, PRN
  5. ZANTAC [Concomitant]
     Dosage: 150 MG, DAILY
  6. EXCEDRIN [CAFFEINE,PARACETAMOL] [Concomitant]
     Dosage: UNK

REACTIONS (4)
  - Cholelithiasis [None]
  - Pain [None]
  - Anxiety [None]
  - Anhedonia [None]
